FAERS Safety Report 4872084-8 (Version None)
Quarter: 2005Q4

REPORT INFORMATION
  Report Type: 
  Country: None (occurrence: None)
  Receive Date: 20051230
  Receipt Date: 20051214
  Transmission Date: 20060501
  Serious: Yes (Death, Other)
  Sender: FDA-Public Use
  Company Number: AT200512002650

PATIENT
  Age: 4 Year
  Sex: Female
  Weight: 19.5 kg

DRUGS (1)
  1. HUMATROPE [Suspect]
     Dosage: 0.24 MG/KG, WEEKLY (1/W)

REACTIONS (8)
  - CARDIAC FAILURE [None]
  - FLUID RETENTION [None]
  - PULMONARY ARTERIAL PRESSURE INCREASED [None]
  - RESPIRATION ABNORMAL [None]
  - RESPIRATORY DISORDER [None]
  - RESPIRATORY FAILURE [None]
  - RIGHT VENTRICULAR FAILURE [None]
  - SLEEP APNOEA SYNDROME [None]
